FAERS Safety Report 16735351 (Version 1)
Quarter: 2019Q3

REPORT INFORMATION
  Report Type: Spontaneous
  Country: US (occurrence: US)
  Receive Date: 20190708
  Receipt Date: 20190708
  Transmission Date: 20191005
  Serious: No
  Sender: FDA-Public Use
  Company Number: None

PATIENT
  Age: 77 Year
  Sex: Male

DRUGS (1)
  1. CAPECITABINE TAB 500MG [Suspect]
     Active Substance: CAPECITABINE
     Dosage: ?          OTHER
     Route: 048
     Dates: start: 201905

REACTIONS (8)
  - Dysuria [None]
  - Peripheral swelling [None]
  - Alopecia [None]
  - Neuralgia [None]
  - Carpal tunnel syndrome [None]
  - Dehydration [None]
  - Increased tendency to bruise [None]
  - Prostatomegaly [None]

NARRATIVE: CASE EVENT DATE: 20190708
